FAERS Safety Report 23470893 (Version 1)
Quarter: 2024Q1

REPORT INFORMATION
  Report Type: Spontaneous
  Country: UA (occurrence: UA)
  Receive Date: 20240202
  Receipt Date: 20240202
  Transmission Date: 20240410
  Serious: Yes (Death)
  Sender: FDA-Public Use
  Company Number: UA-MYLANLABS-2023M1134321

PATIENT
  Age: 47 Year
  Sex: Male

DRUGS (7)
  1. PRETOMANID [Suspect]
     Active Substance: PRETOMANID
     Indication: Pulmonary tuberculosis
     Dosage: 200 MILLIGRAM, QD
     Route: 048
     Dates: start: 20231106, end: 20240105
  2. LINEZOLID [Suspect]
     Active Substance: LINEZOLID
     Indication: Pulmonary tuberculosis
     Dosage: 600 MILLIGRAM, QD
     Route: 048
     Dates: start: 20231107, end: 20240105
  3. BEDAQUILINE FUMARATE [Suspect]
     Active Substance: BEDAQUILINE FUMARATE
     Indication: Pulmonary tuberculosis
     Dosage: 200 MILLIGRAM, 3XW
     Route: 048
     Dates: start: 20231107, end: 20240105
  4. MOXIFLOXACIN [Suspect]
     Active Substance: MOXIFLOXACIN
     Indication: Pulmonary tuberculosis
     Dosage: 400 MILLIGRAM, QD
     Route: 048
     Dates: start: 20231107, end: 20240105
  5. Nezolid [Concomitant]
     Indication: Pulmonary tuberculosis
     Dosage: 600 MILLIGRAM, QD
     Route: 065
     Dates: start: 20231106
  6. SIRTURO [Concomitant]
     Active Substance: BEDAQUILINE FUMARATE
     Indication: Pulmonary tuberculosis
     Dosage: 200 MILLIGRAM, 3XW
     Route: 065
     Dates: start: 20231106
  7. FLOXSAFE [Concomitant]
     Indication: Pulmonary tuberculosis
     Dosage: 400 MILLIGRAM, QD
     Route: 065
     Dates: start: 20231106

REACTIONS (2)
  - Death [Fatal]
  - Nausea [Recovered/Resolved]

NARRATIVE: CASE EVENT DATE: 20231115
